FAERS Safety Report 9999351 (Version 1)
Quarter: 2014Q1

REPORT INFORMATION
  Report Type: Spontaneous
  Country: US (occurrence: None)
  Receive Date: 20140311
  Receipt Date: 20140311
  Transmission Date: 20141002
  Serious: Yes (Life-Threatening, Hospitalization)
  Sender: FDA-Public Use
  Company Number: None

PATIENT
  Age: 82 Year
  Sex: Female
  Weight: 94 kg

DRUGS (9)
  1. PRADAXA [Suspect]
     Indication: ATRIAL FIBRILLATION
     Route: 048
     Dates: start: 20120801, end: 20140305
  2. SOTALOL [Concomitant]
  3. MECLIZINE [Concomitant]
  4. COLCHICINE [Concomitant]
  5. GLIMEPERIDE [Concomitant]
  6. LOPERAMIDE [Concomitant]
  7. ROSUVASTATIN [Concomitant]
  8. EZITIMIBE [Concomitant]
  9. AMLODIPINE [Concomitant]

REACTIONS (9)
  - Asthenia [None]
  - Haematemesis [None]
  - Rectal haemorrhage [None]
  - Malaise [None]
  - Hypophagia [None]
  - Haemoglobin decreased [None]
  - Prothrombin time prolonged [None]
  - Blood urea increased [None]
  - Blood creatinine increased [None]
